FAERS Safety Report 13493367 (Version 1)
Quarter: 2017Q2

REPORT INFORMATION
  Report Type: Spontaneous
  Country: US (occurrence: US)
  Receive Date: 20170427
  Receipt Date: 20170427
  Transmission Date: 20170830
  Serious: No
  Sender: FDA-Public Use
  Company Number: US-ROCHE-1372688

PATIENT
  Sex: Male

DRUGS (2)
  1. ERIVEDGE [Suspect]
     Active Substance: VISMODEGIB
     Indication: BASAL CELL CARCINOMA
     Route: 048
     Dates: start: 20140226
  2. ERIVEDGE [Suspect]
     Active Substance: VISMODEGIB
     Indication: BASAL CELL CARCINOMA

REACTIONS (11)
  - Vomiting [Recovering/Resolving]
  - Nasal congestion [Unknown]
  - Gastric disorder [Unknown]
  - Muscle spasms [Unknown]
  - Nausea [Recovering/Resolving]
  - Malaise [Unknown]
  - Ageusia [Unknown]
  - Faeces discoloured [Not Recovered/Not Resolved]
  - Dizziness [Unknown]
  - Abdominal pain upper [Unknown]
  - Drug dose omission [Unknown]
